FAERS Safety Report 6576452-8 (Version None)
Quarter: 2010Q1

REPORT INFORMATION
  Report Type: 
  Country: None (occurrence: None)
  Receive Date: 20100210
  Receipt Date: 20100209
  Transmission Date: 20100710
  Serious: Yes (Life-Threatening, Other)
  Sender: FDA-Public Use
  Company Number: PHHY2009JP59333

PATIENT
  Age: 18 Year
  Sex: Male
  Weight: 65.4 kg

DRUGS (4)
  1. TEGRETOL [Suspect]
     Indication: PARTIAL SEIZURES
     Dosage: 200 MG DAILY
     Route: 048
     Dates: start: 20091202, end: 20091208
  2. TEGRETOL [Suspect]
     Dosage: 300 MG
     Route: 048
     Dates: start: 20091209, end: 20091216
  3. TEGRETOL [Suspect]
     Dosage: 400 MG DAILY
     Route: 048
     Dates: start: 20091217
  4. LUVOX [Concomitant]
     Indication: OBSESSIVE-COMPULSIVE DISORDER
     Dosage: 200 MG DAILY
     Route: 048

REACTIONS (3)
  - HAEMATOCHEZIA [None]
  - NEUTROPHIL COUNT DECREASED [None]
  - WHITE BLOOD CELL COUNT DECREASED [None]
